FAERS Safety Report 4656028-X (Version None)
Quarter: 2005Q2

REPORT INFORMATION
  Report Type: 
  Country: None (occurrence: None)
  Receive Date: 20050509
  Receipt Date: 20050323
  Transmission Date: 20051028
  Serious: Yes (Death, Other)
  Sender: FDA-Public Use
  Company Number: US-BRISTOL-MYERS SQUIBB COMPANY-12911384

PATIENT
  Age: 80 Year
  Sex: Male

DRUGS (3)
  1. SINEMET [Suspect]
     Indication: PARKINSON'S DISEASE
     Route: 048
     Dates: start: 19960827, end: 20050223
  2. ELDEPRYL [Concomitant]
  3. STALEVO 100 [Concomitant]

REACTIONS (2)
  - PRODUCTIVE COUGH [None]
  - RESPIRATORY FAILURE [None]
